FAERS Safety Report 9271147 (Version 1)
Quarter: 2013Q2

REPORT INFORMATION
  Report Type: Report from Study
  Country: MX (occurrence: MX)
  Receive Date: 20130506
  Receipt Date: 20130506
  Transmission Date: 20140414
  Serious: Yes (Other)
  Sender: FDA-Public Use
  Company Number: PHHY2013MX043878

PATIENT
  Age: 71 Year
  Sex: Female

DRUGS (2)
  1. ACLASTA [Suspect]
     Indication: OSTEOPENIA
     Dosage: 5 MG/ 100 ML, YEARLY
     Route: 042
     Dates: start: 20120328
  2. ESTROGENS [Concomitant]
     Indication: MENOPAUSE
     Dosage: 1 DF, DAILY

REACTIONS (3)
  - Fall [Not Recovered/Not Resolved]
  - Radius fracture [Not Recovered/Not Resolved]
  - Inflammation [Unknown]
